FAERS Safety Report 5488441-5 (Version None)
Quarter: 2007Q4

REPORT INFORMATION
  Report Type: 
  Country: None (occurrence: None)
  Receive Date: 20071017
  Receipt Date: 20071010
  Transmission Date: 20080405
  Serious: Yes (Other)
  Sender: FDA-Public Use
  Company Number: PHBS2007BR16954

PATIENT
  Sex: Female
  Weight: 60 kg

DRUGS (2)
  1. SYNTOCINON [Suspect]
  2. METHERGINE [Suspect]

REACTIONS (3)
  - FEELING ABNORMAL [None]
  - UTERINE DILATION AND CURETTAGE [None]
  - UTERINE HAEMORRHAGE [None]
